FAERS Safety Report 10625023 (Version 1)
Quarter: 2014Q4

REPORT INFORMATION
  Report Type: Spontaneous
  Country: US (occurrence: US)
  Receive Date: 20141204
  Receipt Date: 20141204
  Transmission Date: 20150529
  Serious: No
  Sender: FDA-Public Use
  Company Number: US-BIOGENIDEC-2014BI125943

PATIENT
  Sex: Female

DRUGS (1)
  1. TECFIDERA [Suspect]
     Active Substance: DIMETHYL FUMARATE
     Indication: MULTIPLE SCLEROSIS

REACTIONS (8)
  - Limb discomfort [Unknown]
  - Urinary incontinence [Unknown]
  - Feeling abnormal [Unknown]
  - Dyskinesia [Unknown]
  - Muscular weakness [Unknown]
  - Temperature intolerance [Unknown]
  - Myalgia [Unknown]
  - Balance disorder [Unknown]
